FAERS Safety Report 7808750-1 (Version None)
Quarter: 2011Q4

REPORT INFORMATION
  Report Type: 
  Country: None (occurrence: None)
  Receive Date: 20111012
  Receipt Date: 20111005
  Transmission Date: 20120403
  Serious: Yes (Death, Hospitalization)
  Sender: FDA-Public Use
  Company Number: GB-SANOFI-AVENTIS-2011SA064220

PATIENT
  Age: 83 Year
  Sex: Male
  Weight: 96 kg

DRUGS (4)
  1. PREDNISOLONE [Suspect]
     Indication: PROSTATE CANCER
  2. CABAZITAXEL [Suspect]
     Route: 042
     Dates: start: 20110914, end: 20110914
  3. GENTAMICIN [Concomitant]
  4. CABAZITAXEL [Suspect]
     Indication: PROSTATE CANCER
     Route: 042
     Dates: start: 20110824, end: 20110824

REACTIONS (2)
  - GASTROINTESTINAL HAEMORRHAGE [None]
  - DEVICE RELATED INFECTION [None]
